FAERS Safety Report 6326579-0 (Version None)
Quarter: 2009Q3

REPORT INFORMATION
  Report Type: 
  Country: None (occurrence: None)
  Receive Date: 20090825
  Receipt Date: 20090818
  Transmission Date: 20100115
  Serious: Yes (Other)
  Sender: FDA-Public Use
  Company Number: US-WYE-H08946709

PATIENT
  Sex: Male

DRUGS (1)
  1. TORISEL [Suspect]
     Indication: METASTATIC RENAL CELL CARCINOMA
     Dosage: UNKNOWN
     Dates: start: 20081001, end: 20081101

REACTIONS (4)
  - BRADYCARDIA [None]
  - EJECTION FRACTION DECREASED [None]
  - PERFORMANCE STATUS DECREASED [None]
  - RAYNAUD'S PHENOMENON [None]
